FAERS Safety Report 23324328 (Version 1)
Quarter: 2023Q4

REPORT INFORMATION
  Report Type: Report from Study
  Country: US (occurrence: US)
  Receive Date: 20231221
  Receipt Date: 20231221
  Transmission Date: 20240109
  Serious: Yes (Other)
  Sender: FDA-Public Use
  Company Number: US-E2BLSMVVAL-CLI/USA/23/0032330

PATIENT
  Age: 38 Year
  Sex: Female
  Weight: 64 kg

DRUGS (1)
  1. LURASIDONE HYDROCHLORIDE [Suspect]
     Active Substance: LURASIDONE HYDROCHLORIDE
     Indication: Product used for unknown indication

REACTIONS (4)
  - Subchorionic haematoma [Unknown]
  - Polyhydramnios [Unknown]
  - Exposure during pregnancy [Unknown]
  - Gestational hypertension [Unknown]
